FAERS Safety Report 5965257-4 (Version None)
Quarter: 2008Q4

REPORT INFORMATION
  Report Type: 
  Country: None (occurrence: None)
  Receive Date: 20081124
  Receipt Date: 20081124
  Transmission Date: 20090506
  Serious: Yes (Other)
  Sender: FDA-Public Use
  Company Number: None

PATIENT
  Sex: Female
  Weight: 74.8435 kg

DRUGS (1)
  1. LYRICA [Suspect]
     Dosage: 3 TIMX A DAY
     Dates: start: 20080605, end: 20080612

REACTIONS (4)
  - IMMOBILE [None]
  - JOINT SWELLING [None]
  - MIDDLE INSOMNIA [None]
  - PAIN [None]
